FAERS Safety Report 18784593 (Version 1)
Quarter: 2021Q1

REPORT INFORMATION
  Report Type: Report from Study
  Country: US (occurrence: US)
  Receive Date: 20210125
  Receipt Date: 20210125
  Transmission Date: 20210419
  Serious: Yes (Hospitalization, Other)
  Sender: FDA-Public Use
  Company Number: US-JNJFOC-20210106850

PATIENT

DRUGS (3)
  1. STELARA [Suspect]
     Active Substance: USTEKINUMAB
     Indication: CROHN^S DISEASE
     Route: 042
  2. STELARA [Suspect]
     Active Substance: USTEKINUMAB
     Indication: CROHN^S DISEASE
     Route: 058
     Dates: start: 20210107
  3. STELARA [Suspect]
     Active Substance: USTEKINUMAB

REACTIONS (7)
  - Peritonitis [Unknown]
  - Intestinal perforation [Unknown]
  - Off label use [Unknown]
  - Sepsis [Unknown]
  - Abscess intestinal [Unknown]
  - Product use issue [Unknown]
  - Crohn^s disease [Not Recovered/Not Resolved]

NARRATIVE: CASE EVENT DATE: 2020
